FAERS Safety Report 10039386 (Version 1)
Quarter: 2014Q1

REPORT INFORMATION
  Report Type: Spontaneous
  Country: US (occurrence: None)
  Receive Date: 20140318
  Receipt Date: 20140318
  Transmission Date: 20141002
  Serious: Yes (Other)
  Sender: FDA-Public Use
  Company Number: 2014CT000012

PATIENT
  Age: 38 Year
  Sex: Female
  Weight: 81.65 kg

DRUGS (1)
  1. KORLYM [Suspect]
     Indication: CUSHING^S SYNDROME
     Route: 048
     Dates: start: 20140116

REACTIONS (3)
  - Fatigue [None]
  - Nausea [None]
  - Pyrexia [None]
